FAERS Safety Report 19612308 (Version 2)
Quarter: 2021Q3

REPORT INFORMATION
  Report Type: Spontaneous
  Country: CA (occurrence: CA)
  Receive Date: 20210726
  Receipt Date: 20210920
  Transmission Date: 20211014
  Serious: Yes (Other)
  Sender: FDA-Public Use
  Company Number: CA-ROCHE-2877620

PATIENT
  Age: 31 Year
  Sex: Female

DRUGS (13)
  1. VENTOLIN [Concomitant]
     Active Substance: ALBUTEROL SULFATE
  2. FLUCONAZOLE. [Concomitant]
     Active Substance: FLUCONAZOLE
  3. XOLAIR [Suspect]
     Active Substance: OMALIZUMAB
     Indication: CHRONIC SPONTANEOUS URTICARIA
     Route: 058
     Dates: start: 20210316
  4. TYLENOL [Concomitant]
     Active Substance: ACETAMINOPHEN
  5. SIMPONI [Concomitant]
     Active Substance: GOLIMUMAB
  6. FLOVENT [Concomitant]
     Active Substance: FLUTICASONE PROPIONATE
  7. MARVELON [Concomitant]
     Active Substance: DESOGESTREL\ETHINYL ESTRADIOL
  8. METHOTREXATE. [Concomitant]
     Active Substance: METHOTREXATE
  9. NAPROXEN. [Concomitant]
     Active Substance: NAPROXEN
  10. SULFASALAZINE. [Concomitant]
     Active Substance: SULFASALAZINE
  11. PROTOPIC [Concomitant]
     Active Substance: TACROLIMUS
  12. BETADERM [Concomitant]
     Active Substance: BETAMETHASONE VALERATE
  13. ZOPICLONE [Concomitant]
     Active Substance: ZOPICLONE

REACTIONS (12)
  - Aphasia [Unknown]
  - Gait disturbance [Unknown]
  - Headache [Unknown]
  - Speech disorder [Unknown]
  - Balance disorder [Unknown]
  - Dizziness [Unknown]
  - Motor dysfunction [Unknown]
  - Vision blurred [Unknown]
  - Confusional state [Unknown]
  - Cerebrovascular accident [Recovered/Resolved with Sequelae]
  - Dysarthria [Unknown]
  - Coordination abnormal [Unknown]

NARRATIVE: CASE EVENT DATE: 20210517
